FAERS Safety Report 8191491-1 (Version None)
Quarter: 2012Q1

REPORT INFORMATION
  Report Type: 
  Country: None (occurrence: None)
  Receive Date: 20120307
  Receipt Date: 20120228
  Transmission Date: 20120608
  Serious: No
  Sender: FDA-Public Use
  Company Number: US-ASTRAZENECA-2012SE12726

PATIENT
  Age: 50 Year
  Sex: Female

DRUGS (3)
  1. IMITREX [Concomitant]
  2. EXCEDRINE [Suspect]
     Route: 065
  3. ZOMIG [Suspect]
     Route: 048

REACTIONS (2)
  - DRUG DOSE OMISSION [None]
  - MIGRAINE [None]
